FAERS Safety Report 4524895-6 (Version None)
Quarter: 2004Q4

REPORT INFORMATION
  Report Type: 
  Country: None (occurrence: None)
  Receive Date: 20041117
  Receipt Date: 20040426
  Transmission Date: 20050328
  Serious: Yes (Other)
  Sender: FDA-Public Use
  Company Number: 2004S1001238

PATIENT
  Age: 61 Year
  Sex: Female

DRUGS (7)
  1. CLOZAPINE [Suspect]
     Indication: SCHIZOPHRENIA
     Dosage: 50MG BID, ORAL
     Route: 048
     Dates: start: 20040201
  2. CLOZAPINE [Suspect]
     Indication: SCHIZOPHRENIA
     Dosage: 300 MG Q HS, ORAL
     Route: 048
  3. PINDOLOL [Concomitant]
  4. ASPIRIN [Concomitant]
  5. CONJUGATED ESTROGENS [Concomitant]
  6. ATORVASTATIN [Concomitant]
  7. NIACIN EXTENDED-RELEASE [Concomitant]

REACTIONS (1)
  - NEUTROPENIA [None]
